FAERS Safety Report 13934295 (Version 1)
Quarter: 2017Q3

REPORT INFORMATION
  Report Type: Report from Study
  Country: US (occurrence: US)
  Receive Date: 20170905
  Receipt Date: 20170905
  Transmission Date: 20171127
  Serious: No
  Sender: FDA-Public Use
  Company Number: US-THERATECHNOLOGIES, INC.-TH-2017-00290

PATIENT

DRUGS (1)
  1. EGRIFTA [Suspect]
     Active Substance: TESAMORELIN

REACTIONS (6)
  - Joint stiffness [Unknown]
  - Dyspnoea [Unknown]
  - Dysstasia [Unknown]
  - Joint swelling [Unknown]
  - Injection site bruising [Unknown]
  - Hot flush [Unknown]
